FAERS Safety Report 18153501 (Version 2)
Quarter: 2025Q3

REPORT INFORMATION
  Report Type: Report from Study
  Country: BR (occurrence: BR)
  Receive Date: 20200816
  Receipt Date: 20250722
  Transmission Date: 20251020
  Serious: Yes (Hospitalization, Other)
  Sender: NOVARTIS
  Company Number: BR-NOVARTISPH-NVSC2020BR152624

PATIENT
  Age: 49 Year
  Sex: Female
  Weight: 74 kg

DRUGS (1)
  1. GILENYA [Suspect]
     Active Substance: FINGOLIMOD HYDROCHLORIDE
     Indication: Product used for unknown indication
     Dosage: 0.5 MG, QD
     Route: 065
     Dates: start: 20150312

REACTIONS (8)
  - Lung abscess [Recovered/Resolved]
  - Weight increased [Unknown]
  - Cushingoid [Not Recovered/Not Resolved]
  - Hair growth abnormal [Unknown]
  - Pituitary tumour benign [Not Recovered/Not Resolved]
  - Cushing^s syndrome [Unknown]
  - Pituitary-dependent Cushing^s syndrome [Not Recovered/Not Resolved]
  - Blood pressure increased [Unknown]

NARRATIVE: CASE EVENT DATE: 20171101
